FAERS Safety Report 23510165 (Version 1)
Quarter: 2024Q1

REPORT INFORMATION
  Report Type: Spontaneous
  Country: IT (occurrence: IT)
  Receive Date: 20240211
  Receipt Date: 20240211
  Transmission Date: 20240410
  Serious: Yes (Hospitalization, Other)
  Sender: FDA-Public Use
  Company Number: IT-JNJFOC-20240147063

PATIENT
  Age: 79 Year
  Sex: Male

DRUGS (4)
  1. BORTEZOMIB [Suspect]
     Active Substance: BORTEZOMIB
     Indication: Plasma cell myeloma
     Dosage: 2.3 MILLIGRAM (DATE LAST DOSE PRIOR TO SAE- 24-MAR-2023)
     Route: 065
     Dates: start: 20230320
  2. MELPHALAN [Suspect]
     Active Substance: MELPHALAN
     Indication: Plasma cell myeloma
     Dosage: 10 MILLIGRAM, DAILY (10 MG/DIEDATE LAST DOSE PRIOR TO SAE-24/03/2023)
     Route: 065
     Dates: start: 20230320
  3. DARATUMUMAB [Suspect]
     Active Substance: DARATUMUMAB
     Indication: Plasma cell myeloma
     Dosage: 1800 MILLIGRAM (DATE LAST DOSE PRIOR TO SAE - 24-MAR-2023)
     Route: 058
     Dates: start: 20230320
  4. PREDNISONE [Suspect]
     Active Substance: PREDNISONE
     Indication: Plasma cell myeloma
     Dosage: UNK (DATE LAST DOSE PRIOR TO SAE 24-MAR-2023)
     Route: 065
     Dates: start: 20230320

REACTIONS (1)
  - Acute kidney injury [Recovered/Resolved with Sequelae]

NARRATIVE: CASE EVENT DATE: 20230327
